FAERS Safety Report 4784355-4 (Version None)
Quarter: 2005Q3

REPORT INFORMATION
  Report Type: 
  Country: None (occurrence: None)
  Receive Date: 20050930
  Receipt Date: 20050503
  Transmission Date: 20060218
  Serious: Yes (Death)
  Sender: FDA-Public Use
  Company Number: FR-BRISTOL-MYERS SQUIBB COMPANY-12956777

PATIENT
  Age: 65 Year
  Sex: Male
  Weight: 62 kg

DRUGS (5)
  1. ABILIFY [Suspect]
     Indication: SCHIZOPHRENIA
     Dosage: DOSAGE: 15MG INITIATED ON 20-APR-2005
     Route: 048
     Dates: start: 20050407, end: 20050420
  2. VENTOLIN [Concomitant]
     Indication: DYSPNOEA
     Dates: start: 19940101
  3. LEPTICUR [Concomitant]
     Dates: start: 20020303
  4. LYSANXIA [Concomitant]
     Dates: start: 20020101
  5. LAROXYL [Concomitant]
     Indication: DEPRESSION
     Route: 048
     Dates: start: 20020101

REACTIONS (3)
  - CARDIAC ARREST [None]
  - RESPIRATORY ARREST [None]
  - SELF-MEDICATION [None]
